FAERS Safety Report 14045336 (Version 1)
Quarter: 2017Q4

REPORT INFORMATION
  Report Type: Spontaneous
  Country: US (occurrence: US)
  Receive Date: 20171005
  Receipt Date: 20171005
  Transmission Date: 20180321
  Serious: No
  Sender: FDA-Public Use
  Company Number: US-BRISTOL-MYERS SQUIBB COMPANY-BMS-2017-089264

PATIENT
  Sex: Female
  Weight: 71.66 kg

DRUGS (1)
  1. KENALOG-40 [Suspect]
     Active Substance: TRIAMCINOLONE ACETONIDE
     Indication: PRODUCT USED FOR UNKNOWN INDICATION
     Route: 065

REACTIONS (6)
  - Drug administration error [Unknown]
  - Musculoskeletal pain [Unknown]
  - Skin hypopigmentation [Unknown]
  - Injection site haemorrhage [Unknown]
  - Atrophy [Unknown]
  - Off label use [Unknown]
